FAERS Safety Report 8656043 (Version 2)
Quarter: 2016Q1

REPORT INFORMATION
  Report Type: Report from Study
  Country: US (occurrence: US)
  Receive Date: 20120709
  Receipt Date: 20160317
  Transmission Date: 20160526
  Serious: Yes (Other)
  Sender: FDA-Public Use
  Company Number: US-AMGEN-USASP2012036576

PATIENT
  Age: 50 Year
  Sex: Male

DRUGS (1)
  1. ENBREL [Suspect]
     Active Substance: ETANERCEPT
     Indication: PSORIATIC ARTHROPATHY
     Dosage: 50 MG, QWK
     Route: 065
     Dates: start: 20000101

REACTIONS (5)
  - Shoulder operation [Unknown]
  - Road traffic accident [Unknown]
  - Knee operation [Unknown]
  - Pain [Unknown]
  - Neck surgery [Unknown]

NARRATIVE: CASE EVENT DATE: 201108
